FAERS Safety Report 25202133 (Version 1)
Quarter: 2025Q2

REPORT INFORMATION
  Report Type: Spontaneous
  Country: US (occurrence: US)
  Receive Date: 20250416
  Receipt Date: 20250416
  Transmission Date: 20250717
  Serious: Yes (Other)
  Sender: ZYDUS PHARM
  Company Number: US-CADILA HEALTHCARE LIMITED-US-ZYDUS-121821

PATIENT

DRUGS (27)
  1. METOPROLOL [Interacting]
     Active Substance: METOPROLOL
     Indication: Hypertension
     Route: 065
  2. RISPERIDONE [Interacting]
     Active Substance: RISPERIDONE
     Indication: Schizophrenia
     Route: 065
  3. RISPERIDONE [Interacting]
     Active Substance: RISPERIDONE
     Route: 065
  4. RISPERIDONE [Interacting]
     Active Substance: RISPERIDONE
     Route: 065
  5. RISPERIDONE [Interacting]
     Active Substance: RISPERIDONE
     Route: 065
  6. RISPERIDONE [Interacting]
     Active Substance: RISPERIDONE
     Route: 065
  7. RISPERIDONE [Interacting]
     Active Substance: RISPERIDONE
     Route: 065
  8. RISPERIDONE [Interacting]
     Active Substance: RISPERIDONE
     Route: 065
  9. RISPERIDONE [Interacting]
     Active Substance: RISPERIDONE
     Route: 065
  10. RISPERIDONE [Interacting]
     Active Substance: RISPERIDONE
     Route: 065
  11. RISPERIDONE [Interacting]
     Active Substance: RISPERIDONE
     Route: 065
  12. RISPERIDONE [Interacting]
     Active Substance: RISPERIDONE
     Route: 065
  13. RISPERIDONE [Interacting]
     Active Substance: RISPERIDONE
     Route: 065
  14. CLOZAPINE [Interacting]
     Active Substance: CLOZAPINE
     Indication: Schizophrenia
     Route: 065
  15. CLOZAPINE [Interacting]
     Active Substance: CLOZAPINE
     Route: 065
  16. CLOZAPINE [Interacting]
     Active Substance: CLOZAPINE
     Route: 065
  17. CLOZAPINE [Interacting]
     Active Substance: CLOZAPINE
     Route: 065
  18. CLOZAPINE [Interacting]
     Active Substance: CLOZAPINE
     Route: 065
  19. CLOZAPINE [Interacting]
     Active Substance: CLOZAPINE
     Route: 065
  20. CLOZAPINE [Interacting]
     Active Substance: CLOZAPINE
     Route: 065
  21. CLOZAPINE [Interacting]
     Active Substance: CLOZAPINE
     Route: 065
  22. CLOZAPINE [Interacting]
     Active Substance: CLOZAPINE
     Route: 065
  23. CLOZAPINE [Interacting]
     Active Substance: CLOZAPINE
     Route: 065
  24. CLOZAPINE [Interacting]
     Active Substance: CLOZAPINE
     Route: 065
  25. CLOZAPINE [Interacting]
     Active Substance: CLOZAPINE
     Route: 065
  26. FLUOXETINE [Interacting]
     Active Substance: FLUOXETINE HYDROCHLORIDE
     Indication: Schizophrenia
     Route: 065
  27. TRAZODONE [Concomitant]
     Active Substance: TRAZODONE HYDROCHLORIDE
     Indication: Schizophrenia
     Route: 065

REACTIONS (4)
  - Drug interaction [Unknown]
  - Drug interaction [Unknown]
  - Drug interaction [Unknown]
  - Orthostatic hypotension [Unknown]
